FAERS Safety Report 6440213-0 (Version None)
Quarter: 2009Q4

REPORT INFORMATION
  Report Type: 
  Country: None (occurrence: None)
  Receive Date: 20091113
  Receipt Date: 20091112
  Transmission Date: 20100525
  Serious: Yes (Life-Threatening, Hospitalization, Other)
  Sender: FDA-Public Use
  Company Number: BE-PFIZER INC-2009274630

PATIENT
  Age: 56 Year
  Sex: Male

DRUGS (15)
  1. MEDROL [Suspect]
     Indication: PROPHYLAXIS OF NAUSEA AND VOMITING
     Dosage: 32 MG, 2X/DAY
     Route: 048
     Dates: start: 20090428, end: 20090428
  2. MEDROL [Suspect]
     Dosage: 32 MG, 1X/DAY
     Route: 048
     Dates: start: 20090505, end: 20090518
  3. MEDROL [Suspect]
     Dosage: 32 MG, 2X/DAY
     Route: 048
     Dates: start: 20090519, end: 20090520
  4. MEDROL [Suspect]
     Dosage: 32 MG, 1X/DAY
     Route: 048
     Dates: start: 20090521, end: 20090609
  5. MEDROL [Suspect]
     Dosage: 32 MG, 2X/DAY
     Route: 048
     Dates: start: 20090610, end: 20090610
  6. MEDROL [Suspect]
     Dosage: 32 MG, 1X/DAY
     Route: 048
     Dates: start: 20090611, end: 20090611
  7. MEDROL [Suspect]
     Dosage: 16 MG, 1X/DAY
     Route: 048
     Dates: start: 20090624, end: 20090708
  8. MEDROL [Suspect]
     Dosage: 8 MG, 1X/DAY
     Dates: start: 20090709, end: 20090709
  9. CETUXIMAB [Suspect]
     Indication: HEAD AND NECK CANCER
     Dosage: 395 MG, WEEKLY
     Route: 042
     Dates: start: 20090428, end: 20090716
  10. DOCETAXEL [Suspect]
     Indication: HEAD AND NECK CANCER
     Dosage: 119 MG, EVERY 3 WEEKS
     Route: 042
     Dates: start: 20090428, end: 20090701
  11. FLUOROURACIL [Suspect]
     Indication: HEAD AND NECK CANCER
     Dosage: 1191 MG, EVERY 3 WEEKS
     Route: 042
     Dates: start: 20090428, end: 20090705
  12. CISPLATIN [Suspect]
     Indication: HEAD AND NECK CANCER
     Dosage: 119 MG, EVERY 3 WEEKS
     Route: 042
     Dates: start: 20090428, end: 20090701
  13. OMEPRAZOLE [Concomitant]
     Indication: GASTRIC ULCER
     Dosage: 40 MG, 1X/DAY
     Route: 048
     Dates: start: 20090414, end: 20090709
  14. NULYTELY [Concomitant]
     Dosage: UNK
     Dates: start: 20090427
  15. CHLORHEXIDINE [Concomitant]
     Dosage: UNK
     Dates: start: 20090421, end: 20090718

REACTIONS (10)
  - BRONCHOPULMONARY ASPERGILLOSIS [None]
  - DEEP VEIN THROMBOSIS [None]
  - ENTERITIS [None]
  - HYPERTENSION [None]
  - HYPOTENSION [None]
  - INTERSTITIAL LUNG DISEASE [None]
  - LEFT VENTRICULAR DYSFUNCTION [None]
  - NEUTROPENIA [None]
  - PULMONARY OEDEMA [None]
  - URINARY TRACT INFECTION [None]
